FAERS Safety Report 9157416 (Version 1)
Quarter: 2013Q1

REPORT INFORMATION
  Report Type: Spontaneous
  Country: US (occurrence: None)
  Receive Date: 20130308
  Receipt Date: 20130308
  Transmission Date: 20140127
  Serious: Yes (Other)
  Sender: FDA-Public Use
  Company Number: None

PATIENT
  Age: 71 Year
  Sex: Female
  Weight: 143.79 kg

DRUGS (1)
  1. WARFARIN [Suspect]
     Dosage: #30
     Route: 048
     Dates: start: 201207, end: 201209

REACTIONS (2)
  - International normalised ratio increased [None]
  - Product substitution issue [None]
